FAERS Safety Report 11661129 (Version 1)
Quarter: 2015Q4

REPORT INFORMATION
  Report Type: Report from Study
  Country: ZA (occurrence: ZA)
  Receive Date: 20151026
  Receipt Date: 20151026
  Transmission Date: 20160304
  Serious: Yes (Death, Other)
  Sender: FDA-Public Use
  Company Number: PHHY2015ZA124729

PATIENT
  Age: 51 Year
  Sex: Female
  Weight: 55 kg

DRUGS (4)
  1. PARADOL//PARACETAMOL [Concomitant]
     Active Substance: ACETAMINOPHEN
     Indication: ANALGESIC THERAPY
     Dosage: 1 G, Q8H
     Route: 048
     Dates: start: 201501
  2. TASIGNA [Suspect]
     Active Substance: NILOTINIB
     Indication: CHRONIC MYELOID LEUKAEMIA
     Dosage: 400 MG, BID
     Route: 065
  3. ALLOPURINOL. [Concomitant]
     Active Substance: ALLOPURINOL
     Indication: HYPERURICAEMIA
     Dosage: 300 MG, QD
     Route: 048
     Dates: start: 201504
  4. AMITRIPTYLINE [Concomitant]
     Active Substance: AMITRIPTYLINE
     Indication: ANALGESIC THERAPY
     Dosage: 25 MG, NOCTE
     Route: 048
     Dates: start: 201506

REACTIONS (5)
  - Blast crisis in myelogenous leukaemia [Fatal]
  - Asthenia [Unknown]
  - White blood cell count increased [Unknown]
  - Platelet count decreased [Unknown]
  - Anaemia [Fatal]

NARRATIVE: CASE EVENT DATE: 201504
